FAERS Safety Report 7824499 (Version 3)
Quarter: 2014Q4

REPORT INFORMATION
  Report Type: Spontaneous
  Country: US (occurrence: US)
  Receive Date: 20110224
  Receipt Date: 20141226
  Transmission Date: 20150529
  Serious: Yes (Life-Threatening, Hospitalization)
  Sender: FDA-Public Use
  Company Number: US-BAYER-2011-017067

PATIENT
  Age: 45 Year
  Sex: Female
  Weight: 52.15 kg

DRUGS (11)
  1. ACETYLSALICYLIC ACID [Concomitant]
     Active Substance: ASPIRIN
  2. ATENOLOL. [Concomitant]
     Active Substance: ATENOLOL
  3. YASMIN [Suspect]
     Active Substance: DROSPIRENONE\ETHINYL ESTRADIOL
     Indication: CONTRACEPTION
     Dosage: UNK
     Route: 048
     Dates: end: 20080218
  4. NAPROXEN. [Concomitant]
     Active Substance: NAPROXEN
  5. ZOCOR [Concomitant]
     Active Substance: SIMVASTATIN
  6. ALIGN [Concomitant]
     Active Substance: BIFIDOBACTERIUM LONGUM SUBSP. INFANTIS
     Dosage: UNK
     Route: 048
     Dates: start: 20080212
  7. YASMIN [Suspect]
     Active Substance: DROSPIRENONE\ETHINYL ESTRADIOL
     Indication: MENSTRUAL CYCLE MANAGEMENT
     Dosage: UNK
     Route: 048
     Dates: start: 200710, end: 200802
  8. MIRENA [Concomitant]
     Active Substance: LEVONORGESTREL
     Indication: CONTRACEPTION
     Dosage: UNK
     Dates: start: 20080318
  9. DIAZEPAM. [Concomitant]
     Active Substance: DIAZEPAM
     Dosage: 5 MG
     Route: 048
     Dates: start: 20080212
  10. CLONAZEPAM. [Concomitant]
     Active Substance: CLONAZEPAM
  11. HYOSCYAMINE [Concomitant]
     Active Substance: HYOSCYAMINE

REACTIONS (6)
  - Aortic embolus [None]
  - Fatigue [None]
  - Pain [None]
  - Thrombosis [None]
  - Cerebrovascular accident [Recovered/Resolved]
  - Anxiety [None]

NARRATIVE: CASE EVENT DATE: 200802
